FAERS Safety Report 4326351-7 (Version None)
Quarter: 2004Q1

REPORT INFORMATION
  Report Type: 
  Country: None (occurrence: None)
  Receive Date: 20040329
  Receipt Date: 20040329
  Transmission Date: 20041129
  Serious: Yes (Other)
  Sender: FDA-Public Use
  Company Number: None

PATIENT
  Age: 54 Year
  Sex: Female
  Weight: 52.1637 kg

DRUGS (1)
  1. CYPHER SIROLIMUS-ELUTING CORNARY STENT [Suspect]
     Dates: start: 20031216

REACTIONS (4)
  - CONFUSIONAL STATE [None]
  - HYPOAESTHESIA [None]
  - MEMORY IMPAIRMENT [None]
  - SENSORY LOSS [None]
